FAERS Safety Report 10923780 (Version 2)
Quarter: 2015Q1

REPORT INFORMATION
  Report Type: Spontaneous
  Country: FR (occurrence: FR)
  Receive Date: 20150318
  Receipt Date: 20150331
  Transmission Date: 20150721
  Serious: Yes (Hospitalization)
  Sender: FDA-Public Use
  Company Number: FR-PFIZER INC-2015095125

PATIENT
  Age: 59 Year
  Sex: Female

DRUGS (18)
  1. INDAPAMIDE BIOGARAN [Suspect]
     Active Substance: INDAPAMIDE
     Dosage: 1.5 MG, 2X/DAY
     Route: 048
     Dates: start: 201409, end: 20150122
  2. EUPRESSYL [Concomitant]
     Active Substance: URAPIDIL
     Dosage: UNK
     Dates: end: 2014
  3. HYPERIUM [Concomitant]
     Active Substance: RILMENIDINE PHOSPHATE
     Dosage: UNK
     Dates: end: 2014
  4. DIAMICRON [Concomitant]
     Active Substance: GLICLAZIDE
  5. EUPRESSYL [Concomitant]
     Active Substance: URAPIDIL
     Dosage: UNK
     Dates: start: 2014
  6. SPIRONOLACTONE. [Suspect]
     Active Substance: SPIRONOLACTONE
     Dosage: 25 MG, 1X/DAY
     Route: 048
     Dates: start: 201306, end: 20150122
  7. OMEPRAZOLE. [Concomitant]
     Active Substance: OMEPRAZOLE
     Dosage: UNK
     Dates: start: 2014
  8. PERINDOPRIL [Concomitant]
     Active Substance: PERINDOPRIL
     Dosage: UNK
     Dates: start: 20140926, end: 20141023
  9. HYPERIUM [Concomitant]
     Active Substance: RILMENIDINE PHOSPHATE
     Dosage: UNK
     Dates: start: 2014
  10. RISPERDAL CONSTA [Concomitant]
     Active Substance: RISPERIDONE
  11. SIMVASTATIN. [Concomitant]
     Active Substance: SIMVASTATIN
  12. AMLOR [Concomitant]
     Active Substance: AMLODIPINE BESYLATE
  13. TRIATEC [Concomitant]
     Active Substance: RAMIPRIL
     Dosage: UNK
     Dates: start: 20141023, end: 2014
  14. TARDYFERON [Concomitant]
     Active Substance: FERROUS SULFATE\FOLIC ACID
     Dosage: UNK
     Dates: start: 2014
  15. VALSARTAN AND HYDROCHLOROTHIAZIDE [Suspect]
     Active Substance: HYDROCHLOROTHIAZIDE\VALSARTAN
     Dosage: 1 DF, 1X/DAY
     Route: 048
     Dates: start: 201110, end: 201412
  16. GLUCOPHAGE [Concomitant]
     Active Substance: METFORMIN HYDROCHLORIDE
  17. VICTOZA [Suspect]
     Active Substance: LIRAGLUTIDE
     Dosage: 1.2 MG, 1X/DAY
     Route: 058
     Dates: start: 2011, end: 20150120
  18. RISPERDAL [Concomitant]
     Active Substance: RISPERIDONE

REACTIONS (4)
  - Dermatitis psoriasiform [Recovering/Resolving]
  - Confusional state [Unknown]
  - Pruritus [Recovering/Resolving]
  - Iron deficiency anaemia [Unknown]

NARRATIVE: CASE EVENT DATE: 201411
